FAERS Safety Report 17510317 (Version 3)
Quarter: 2020Q2

REPORT INFORMATION
  Report Type: Spontaneous
  Country: US (occurrence: US)
  Receive Date: 20200306
  Receipt Date: 20200427
  Transmission Date: 20200713
  Serious: No
  Sender: FDA-Public Use
  Company Number: US-009507513-2002USA010472

PATIENT
  Sex: Female

DRUGS (2)
  1. NUVARING [Suspect]
     Active Substance: ETHINYL ESTRADIOL\ETONOGESTREL
     Indication: CONTRACEPTION
     Dosage: 1 RING
     Route: 067
  2. ETONOGESTREL (+) ETHINYL ESTRADIOL [Suspect]
     Active Substance: ETHINYL ESTRADIOL\ETONOGESTREL
     Indication: CONTRACEPTION
     Dosage: 1 RING, QM; POTENCY 11.7 MG/2.7 MG
     Route: 067
     Dates: start: 202002, end: 202002

REACTIONS (8)
  - Dizziness [Recovered/Resolved]
  - Menstrual disorder [Unknown]
  - Adverse reaction [Unknown]
  - Therapy change [Unknown]
  - Presyncope [Recovered/Resolved]
  - Muscle spasms [Recovered/Resolved]
  - Incorrect product administration duration [Unknown]
  - Nausea [Recovered/Resolved]

NARRATIVE: CASE EVENT DATE: 202002
